FAERS Safety Report 18005233 (Version 3)
Quarter: 2020Q3

REPORT INFORMATION
  Report Type: Report from Study
  Country: US (occurrence: US)
  Receive Date: 20200710
  Receipt Date: 20200901
  Transmission Date: 20201103
  Serious: No
  Sender: FDA-Public Use
  Company Number: US-BIOVITRUM-2020US3278

PATIENT
  Age: 83 Year
  Sex: Female

DRUGS (9)
  1. KINERET [Suspect]
     Active Substance: ANAKINRA
     Indication: RHEUMATOID ARTHRITIS
     Route: 058
     Dates: start: 20200527
  2. PREVACID [Concomitant]
     Active Substance: LANSOPRAZOLE
  3. IMURAN [Concomitant]
     Active Substance: AZATHIOPRINE
  4. METHANAMINE [Concomitant]
  5. PREDNISONE. [Concomitant]
     Active Substance: PREDNISONE
  6. METOPROLOL. [Concomitant]
     Active Substance: METOPROLOL
  7. KINERET [Suspect]
     Active Substance: ANAKINRA
     Indication: SJOGREN^S SYNDROME
  8. LEVOTHYROXINE. [Concomitant]
     Active Substance: LEVOTHYROXINE
  9. KINERET [Suspect]
     Active Substance: ANAKINRA
     Indication: LE CELLS
     Route: 048
     Dates: start: 20200528

REACTIONS (12)
  - Skin ulcer [Unknown]
  - Injection site pain [Unknown]
  - Erythema [Unknown]
  - Swelling [Unknown]
  - Off label use [Unknown]
  - Pain [Unknown]
  - Fatigue [Unknown]
  - Injection site bruising [Unknown]
  - Syringe issue [Unknown]
  - Incorrect route of product administration [Not Recovered/Not Resolved]
  - Asthenia [Unknown]
  - Discomfort [Unknown]

NARRATIVE: CASE EVENT DATE: 20200527
